FAERS Safety Report 5835166-X (Version None)
Quarter: 2008Q3

REPORT INFORMATION
  Report Type: 
  Country: None (occurrence: None)
  Receive Date: 20080725
  Receipt Date: 20080404
  Transmission Date: 20090109
  Serious: Yes (Other)
  Sender: FDA-Public Use
  Company Number: OPER20080070

PATIENT
  Age: 80 Year
  Sex: Female
  Weight: 113.3993 kg

DRUGS (2)
  1. OPANA ER [Suspect]
  2. AMBIEN [Suspect]

REACTIONS (1)
  - HALLUCINATION [None]
